FAERS Safety Report 17569232 (Version 1)
Quarter: 2020Q1

REPORT INFORMATION
  Report Type: Report from Study
  Country: US (occurrence: US)
  Receive Date: 20200322
  Receipt Date: 20200322
  Transmission Date: 20200409
  Serious: No
  Sender: FDA-Public Use
  Company Number: NVSC2020US074783

PATIENT
  Sex: Male

DRUGS (1)
  1. AFINITOR [Suspect]
     Active Substance: EVEROLIMUS
     Indication: ASTROCYTOMA, LOW GRADE
     Dosage: 2.5 MG, QD
     Route: 048
     Dates: start: 20110103

REACTIONS (1)
  - Abnormal behaviour [Unknown]
